FAERS Safety Report 7238628-6 (Version None)
Quarter: 2011Q1

REPORT INFORMATION
  Report Type: 
  Country: None (occurrence: None)
  Receive Date: 20110119
  Receipt Date: 20110119
  Transmission Date: 20110831
  Serious: Yes (Hospitalization)
  Sender: FDA-Public Use
  Company Number: None

PATIENT
  Age: 55 Year
  Sex: Male
  Weight: 104.3 kg

DRUGS (1)
  1. ACETAMINOPHEN / OXYCODONE [Suspect]
     Indication: PAIN
     Dates: start: 20100704, end: 20100705

REACTIONS (1)
  - ANGIOEDEMA [None]
